FAERS Safety Report 15603446 (Version 2)
Quarter: 2018Q4

REPORT INFORMATION
  Report Type: Spontaneous
  Country: JP (occurrence: JP)
  Receive Date: 20181109
  Receipt Date: 20181211
  Transmission Date: 20190205
  Serious: Yes (Other)
  Sender: FDA-Public Use
  Company Number: JP-SHIRE-JP201735604

PATIENT
  Sex: Male
  Weight: 8 kg

DRUGS (4)
  1. ADVATE [Suspect]
     Active Substance: ANTIHEMOPHILIC FACTOR, HUMAN RECOMBINANT
     Indication: HAEMORRHAGE PROPHYLAXIS
     Dosage: UNK UNK, 1X/WEEK
     Route: 042
     Dates: start: 201711, end: 201712
  2. ADVATE [Suspect]
     Active Substance: ANTIHEMOPHILIC FACTOR, HUMAN RECOMBINANT
     Indication: FACTOR VIII DEFICIENCY
     Dosage: UNK UNK, ONE DOSE
     Route: 042
     Dates: start: 201708, end: 201708
  3. ADVATE [Suspect]
     Active Substance: ANTIHEMOPHILIC FACTOR, HUMAN RECOMBINANT
     Indication: IMMUNE TOLERANCE INDUCTION
     Dosage: UNK UNK, AS REQ^D
     Route: 042
     Dates: end: 201711
  4. ADVATE [Suspect]
     Active Substance: ANTIHEMOPHILIC FACTOR, HUMAN RECOMBINANT
     Indication: HAEMORRHAGE
     Dosage: 500 IU, 3X A WEEK
     Route: 042
     Dates: start: 20180322

REACTIONS (4)
  - Factor VIII inhibition [Recovered/Resolved]
  - Haemarthrosis [Unknown]
  - Head injury [Unknown]
  - Peripheral swelling [Unknown]

NARRATIVE: CASE EVENT DATE: 201711
